FAERS Safety Report 17888529 (Version 1)
Quarter: 2020Q2

REPORT INFORMATION
  Report Type: Spontaneous
  Country: US (occurrence: US)
  Receive Date: 20200611
  Receipt Date: 20200611
  Transmission Date: 20200714
  Serious: Yes (Death)
  Sender: FDA-Public Use
  Company Number: None

PATIENT
  Age: 83 Year
  Sex: Male

DRUGS (10)
  1. PROAIR MDI [Concomitant]
  2. ANORO ELLIPTA [Concomitant]
     Active Substance: UMECLIDINIUM BROMIDE\VILANTEROL TRIFENATATE
  3. OMEPRAZOLE 40 [Concomitant]
     Active Substance: OMEPRAZOLE
  4. DOXYCYCLINE. [Concomitant]
     Active Substance: DOXYCYCLINE
  5. BETHKIS [Suspect]
     Active Substance: TOBRAMYCIN
     Indication: PSEUDOMONAS INFECTION
     Route: 055
     Dates: start: 20200107, end: 20200521
  6. TRIUMEQ [Concomitant]
     Active Substance: ABACAVIR SULFATE\DOLUTEGRAVIR SODIUM\LAMIVUDINE
  7. MUPIROCIN. [Concomitant]
     Active Substance: MUPIROCIN
  8. LEVOCETIRIZINE 5MG [Concomitant]
     Active Substance: LEVOCETIRIZINE
  9. IPRATROPI/ALBUT NEB [Concomitant]
  10. LEVOFLOXACIN. [Concomitant]
     Active Substance: LEVOFLOXACIN

REACTIONS (1)
  - Death [None]

NARRATIVE: CASE EVENT DATE: 20200611
